FAERS Safety Report 4935241-8 (Version None)
Quarter: 2006Q1

REPORT INFORMATION
  Report Type: 
  Country: None (occurrence: None)
  Receive Date: 20060307
  Receipt Date: 20060222
  Transmission Date: 20060701
  Serious: Yes (Death, Life-Threatening)
  Sender: FDA-Public Use
  Company Number: IL-NOVOPROD-251093

PATIENT
  Age: 74 Year
  Sex: Female
  Weight: 76 kg

DRUGS (7)
  1. PHENYTOIN SODIUM [Concomitant]
     Dosage: 300 MG, QD
     Route: 048
     Dates: start: 20060211
  2. FAMOTIDINE [Concomitant]
     Dosage: 40 MG, QD
     Route: 048
     Dates: start: 20060212
  3. DIPYRONE TAB [Concomitant]
     Dosage: UNK G, QD
     Route: 048
     Dates: start: 20060212
  4. ENALAPRIL MALEATE [Concomitant]
     Dosage: 10 MG, QD
     Route: 048
     Dates: start: 20060213
  5. HYDROCHLOROTHIAZIDE [Concomitant]
     Dosage: 25 MG, QD
     Route: 048
     Dates: start: 20060213
  6. ATENOLOL [Concomitant]
     Dosage: 25 MG, QD
     Route: 048
     Dates: start: 20060213
  7. NOVOSEVEN [Suspect]
     Indication: BRAIN CONTUSION
     Dosage: 200 UG, UNK
     Route: 042
     Dates: start: 20060211, end: 20060211

REACTIONS (8)
  - CARDIOGENIC SHOCK [None]
  - COMA [None]
  - HAEMODYNAMIC INSTABILITY [None]
  - ISCHAEMIC HEPATITIS [None]
  - POST PROCEDURAL COMPLICATION [None]
  - PULMONARY EMBOLISM [None]
  - RENAL FAILURE ACUTE [None]
  - RIGHT VENTRICULAR FAILURE [None]
